FAERS Safety Report 7134079-3 (Version None)
Quarter: 2010Q4

REPORT INFORMATION
  Report Type: 
  Country: None (occurrence: None)
  Receive Date: 20101203
  Receipt Date: 20101125
  Transmission Date: 20110411
  Serious: Yes (Other)
  Sender: FDA-Public Use
  Company Number: CN-JNJFOC-20101108804

PATIENT
  Age: 50 Year
  Sex: Male

DRUGS (1)
  1. SPORANOX [Suspect]
     Indication: TINEA CRURIS
     Dosage: STRENGTH OF THE DRUG- 100 MG
     Route: 048

REACTIONS (4)
  - EFFUSION [None]
  - GENERALISED ERYTHEMA [None]
  - OROPHARYNGEAL BLISTERING [None]
  - PRURITUS [None]
